FAERS Safety Report 9372794 (Version 3)
Quarter: 2013Q3

REPORT INFORMATION
  Report Type: Report from Study
  Country: US (occurrence: US)
  Receive Date: 20130627
  Receipt Date: 20130905
  Transmission Date: 20140515
  Serious: Yes (Hospitalization)
  Sender: FDA-Public Use
  Company Number: US-ACTELION-A-NJ2013-85103

PATIENT
  Age: 71 Year
  Sex: Male

DRUGS (3)
  1. TRACLEER [Suspect]
     Indication: PULMONARY ARTERIAL HYPERTENSION
     Dosage: UNK
     Route: 048
  2. COUMADIN [Suspect]
  3. ADCIRCA [Concomitant]

REACTIONS (4)
  - Vascular injury [Unknown]
  - Haemorrhage [Unknown]
  - Weight decreased [Unknown]
  - Pneumonia [Unknown]
